FAERS Safety Report 7071693-8 (Version None)
Quarter: 2010Q4

REPORT INFORMATION
  Report Type: 
  Country: None (occurrence: None)
  Receive Date: 20101029
  Receipt Date: 20091008
  Transmission Date: 20110411
  Serious: No
  Sender: FDA-Public Use
  Company Number: A0810947A

PATIENT
  Age: 68 Year
  Sex: Female

DRUGS (4)
  1. ADVAIR DISKUS 100/50 [Suspect]
     Indication: CHRONIC OBSTRUCTIVE PULMONARY DISEASE
     Route: 055
     Dates: start: 20080301
  2. PROVENTIL [Concomitant]
  3. ASPIRIN [Concomitant]
  4. ADVIL [Concomitant]

REACTIONS (4)
  - FEELING ABNORMAL [None]
  - HEADACHE [None]
  - HEART RATE INCREASED [None]
  - SENSORY DISTURBANCE [None]
